FAERS Safety Report 16994857 (Version 2)
Quarter: 2019Q4

REPORT INFORMATION
  Report Type: Report from Study
  Country: CO (occurrence: CO)
  Receive Date: 20191105
  Receipt Date: 20191218
  Transmission Date: 20200122
  Serious: No
  Sender: FDA-Public Use
  Company Number: CO-JNJFOC-20191101202

PATIENT
  Age: 54 Year
  Sex: Male
  Weight: 70 kg

DRUGS (2)
  1. STELARA [Suspect]
     Active Substance: USTEKINUMAB
     Indication: PSORIATIC ARTHROPATHY
     Route: 058
     Dates: start: 20150424, end: 20181023
  2. STELARA [Suspect]
     Active Substance: USTEKINUMAB
     Dosage: THE LAST APPLICATION WAS ON 16-JUN-2019
     Route: 058
     Dates: start: 20190324, end: 20190616

REACTIONS (4)
  - Transaminases increased [Recovering/Resolving]
  - Psoriasis [Not Recovered/Not Resolved]
  - Laboratory test abnormal [Not Recovered/Not Resolved]
  - Product dose omission [Unknown]

NARRATIVE: CASE EVENT DATE: 201910
